FAERS Safety Report 23041518 (Version 1)
Quarter: 2023Q4

REPORT INFORMATION
  Report Type: Report from Study
  Country: US (occurrence: US)
  Receive Date: 20231007
  Receipt Date: 20231007
  Transmission Date: 20240109
  Serious: Yes (Hospitalization)
  Sender: FDA-Public Use
  Company Number: US-TAKEDA-2023TUS042256

PATIENT
  Sex: Male

DRUGS (8)
  1. TEDUGLUTIDE [Suspect]
     Active Substance: TEDUGLUTIDE
     Indication: Product used for unknown indication
     Dosage: 0.41 MILLILITER, QD
     Route: 058
     Dates: start: 20230213
  2. TEDUGLUTIDE [Suspect]
     Active Substance: TEDUGLUTIDE
     Indication: Product used for unknown indication
     Dosage: 0.41 MILLILITER, QD
     Route: 058
     Dates: start: 20230213
  3. TEDUGLUTIDE [Suspect]
     Active Substance: TEDUGLUTIDE
     Indication: Product used for unknown indication
     Dosage: 0.41 MILLILITER, QD
     Route: 058
     Dates: start: 20230213
  4. TEDUGLUTIDE [Suspect]
     Active Substance: TEDUGLUTIDE
     Indication: Product used for unknown indication
     Dosage: 0.41 MILLILITER, QD
     Route: 058
     Dates: start: 20230213
  5. TEDUGLUTIDE [Suspect]
     Active Substance: TEDUGLUTIDE
     Dosage: 0.411 MILLILITER, QD
     Route: 058
     Dates: start: 20230216
  6. TEDUGLUTIDE [Suspect]
     Active Substance: TEDUGLUTIDE
     Dosage: 0.411 MILLILITER, QD
     Route: 058
     Dates: start: 20230216
  7. TEDUGLUTIDE [Suspect]
     Active Substance: TEDUGLUTIDE
     Dosage: 0.411 MILLILITER, QD
     Route: 058
     Dates: start: 20230216
  8. TEDUGLUTIDE [Suspect]
     Active Substance: TEDUGLUTIDE
     Dosage: 0.411 MILLILITER, QD
     Route: 058
     Dates: start: 20230216

REACTIONS (3)
  - Hospitalisation [Unknown]
  - Needle issue [Unknown]
  - Product reconstitution quality issue [Unknown]
